FAERS Safety Report 7025295-X (Version None)
Quarter: 2010Q4

REPORT INFORMATION
  Report Type: 
  Country: None (occurrence: None)
  Receive Date: 20101001
  Receipt Date: 20100923
  Transmission Date: 20110411
  Serious: Yes (Hospitalization)
  Sender: FDA-Public Use
  Company Number: US-US-EMD SERONO, INC.-7012946

PATIENT
  Sex: Female
  Weight: 64 kg

DRUGS (2)
  1. REBIF [Suspect]
     Indication: MULTIPLE SCLEROSIS
     Route: 058
     Dates: start: 20020101, end: 20100716
  2. BACLOFEN [Concomitant]
     Indication: MUSCLE SPASMS

REACTIONS (8)
  - ANAEMIA [None]
  - DECREASED APPETITE [None]
  - FEELING ABNORMAL [None]
  - INCREASED APPETITE [None]
  - PAIN [None]
  - SOMNOLENCE [None]
  - VOMITING [None]
  - WHITE BLOOD CELL COUNT DECREASED [None]
